FAERS Safety Report 7555573-7 (Version None)
Quarter: 2011Q2

REPORT INFORMATION
  Report Type: 
  Country: None (occurrence: None)
  Receive Date: 20110617
  Receipt Date: 20070126
  Transmission Date: 20111010
  Serious: Yes (Death, Hospitalization, Other)
  Sender: FDA-Public Use
  Company Number: PHEH2006US12943

PATIENT
  Sex: Male
  Weight: 60.77 kg

DRUGS (9)
  1. LIDODERM [Concomitant]
     Dosage: UNK, Q12H
     Route: 062
  2. EXJADE [Suspect]
     Indication: IRON OVERLOAD
     Dosage: 1250 MG, QD
     Route: 048
     Dates: start: 20060315, end: 20060922
  3. NEURONTIN [Concomitant]
     Dosage: 300 MG, TID
  4. DURAGESIC-100 [Concomitant]
     Dosage: 100 UG/HR, Q72H
  5. OXYCODONE HCL [Concomitant]
     Indication: BREAKTHROUGH PAIN
     Dosage: 5 TO 10MG, Q4H
  6. CALCIUM WITH VITAMIN D [Concomitant]
     Dosage: 500 MG, UNK
  7. HYDROXYUREA [Concomitant]
     Dosage: 1000MG ALTERNATING W/ 500MG DAILY
  8. SULINDAC [Concomitant]
     Dosage: 150 MG, QD
  9. ZOLOFT [Concomitant]
     Dosage: 50 MG, QD

REACTIONS (9)
  - DEMENTIA [None]
  - GAIT DISTURBANCE [None]
  - DELIRIUM [None]
  - VITAMIN B12 DECREASED [None]
  - MICROANGIOPATHY [None]
  - URINARY INCONTINENCE [None]
  - ENCEPHALITIS HERPES [None]
  - STUPOR [None]
  - NUCLEAR MAGNETIC RESONANCE IMAGING ABNORMAL [None]
